FAERS Safety Report 22365375 (Version 1)
Quarter: 2023Q2

REPORT INFORMATION
  Report Type: Spontaneous
  Country: US (occurrence: US)
  Receive Date: 20230525
  Receipt Date: 20230525
  Transmission Date: 20230721
  Serious: No
  Sender: FDA-Public Use
  Company Number: US-GLAXOSMITHKLINE-US2023AMR073561

PATIENT
  Sex: Female
  Weight: 70 kg

DRUGS (4)
  1. ZEJULA [Suspect]
     Active Substance: NIRAPARIB
     Indication: Ovarian cancer
     Dosage: 100 MG, QD
     Route: 048
     Dates: start: 20230331
  2. ZEJULA [Suspect]
     Active Substance: NIRAPARIB
     Indication: Cervix carcinoma
  3. ZEJULA [Suspect]
     Active Substance: NIRAPARIB
     Indication: Metastases to retroperitoneum
  4. ZEJULA [Suspect]
     Active Substance: NIRAPARIB
     Indication: Genital neoplasm malignant female

REACTIONS (1)
  - Fatigue [Not Recovered/Not Resolved]
